FAERS Safety Report 10402609 (Version 1)
Quarter: 2014Q3

REPORT INFORMATION
  Report Type: Spontaneous
  Country: CA (occurrence: CA)
  Receive Date: 20140822
  Receipt Date: 20140822
  Transmission Date: 20150326
  Serious: Yes (Death, Hospitalization, Other)
  Sender: FDA-Public Use
  Company Number: CA-PAR PHARMACEUTICAL, INC-2014SCPR009342

PATIENT

DRUGS (2)
  1. PITRESSIN [Suspect]
     Active Substance: VASOPRESSIN
     Indication: SEPTIC SHOCK
     Dosage: UNK UNK, UNKNOWN
     Route: 065
  2. NOREPINEPHRINE [Suspect]
     Active Substance: NOREPINEPHRINE\NOREPINEPHRINE BITARTRATE
     Indication: SEPTIC SHOCK
     Dosage: UNK UNK, UNKNOWN
     Route: 065

REACTIONS (9)
  - Cerebrovascular accident [Unknown]
  - Intestinal ischaemia [Unknown]
  - Death [Fatal]
  - Cardiac arrest [Unknown]
  - Bradyarrhythmia [Unknown]
  - Peripheral ischaemia [Unknown]
  - Myocardial ischaemia [Unknown]
  - Tachyarrhythmia [Unknown]
  - Septic shock [None]
